FAERS Safety Report 20213371 (Version 2)
Quarter: 2022Q1

REPORT INFORMATION
  Report Type: Spontaneous
  Country: CA (occurrence: CA)
  Receive Date: 20211221
  Receipt Date: 20220131
  Transmission Date: 20220424
  Serious: Yes (Life-Threatening, Hospitalization, Disabling, Other)
  Sender: FDA-Public Use
  Company Number: CA-PFIZER INC-202101779210

PATIENT
  Age: 55 Year
  Sex: Female
  Weight: 81.6 kg

DRUGS (3)
  1. IBRANCE [Suspect]
     Active Substance: PALBOCICLIB
     Indication: Breast cancer metastatic
     Dosage: 125 MG, CYCLIC (DAILY X 21 DAYS OFF 7 DAYS)
     Route: 048
     Dates: start: 20200513
  2. IBRANCE [Suspect]
     Active Substance: PALBOCICLIB
     Dosage: 100 MG, CYCLIC (1X/DAY, 3 WEEKS ON AND 1 WEEK OFF)
     Route: 048
     Dates: end: 202109
  3. LETROZOLE [Suspect]
     Active Substance: LETROZOLE
     Indication: Breast cancer
     Dosage: 2.5 MG
     Dates: start: 20200429, end: 20211223

REACTIONS (3)
  - Cerebrovascular accident [Recovered/Resolved with Sequelae]
  - Aphasia [Unknown]
  - Pulmonary embolism [Unknown]

NARRATIVE: CASE EVENT DATE: 20210701
